FAERS Safety Report 12239758 (Version 2)
Quarter: 2016Q4

REPORT INFORMATION
  Report Type: Spontaneous
  Country: US (occurrence: US)
  Receive Date: 20160405
  Receipt Date: 20161010
  Transmission Date: 20170207
  Serious: Yes (Death, Other)
  Sender: FDA-Public Use
  Company Number: US-ROCHE-1654568

PATIENT
  Age: 43 Year
  Sex: Female

DRUGS (1)
  1. ERIVEDGE [Suspect]
     Active Substance: VISMODEGIB
     Indication: SKIN CANCER
     Dosage: 1 CAPSULE BY MOUTH DAILY
     Route: 048
     Dates: start: 20150409

REACTIONS (10)
  - Insomnia [Unknown]
  - Cough [Unknown]
  - Amenorrhoea [Not Recovered/Not Resolved]
  - Dysgeusia [Not Recovered/Not Resolved]
  - Alopecia [Not Recovered/Not Resolved]
  - Muscle spasms [Not Recovered/Not Resolved]
  - Death [Fatal]
  - Vomiting [Unknown]
  - Weight decreased [Unknown]
  - Productive cough [Unknown]

NARRATIVE: CASE EVENT DATE: 201506
